FAERS Safety Report 5071897-X (Version None)
Quarter: 2006Q3

REPORT INFORMATION
  Report Type: 
  Country: None (occurrence: None)
  Receive Date: 20060804
  Receipt Date: 20060726
  Transmission Date: 20061208
  Serious: Yes (Death, Other)
  Sender: FDA-Public Use
  Company Number: JP-MERCK-0608USA00064

PATIENT
  Age: 28 Day
  Weight: 2 kg

DRUGS (1)
  1. DECADRON [Suspect]
     Indication: HISTIOCYTOSIS HAEMATOPHAGIC
     Route: 048

REACTIONS (2)
  - DEATH [None]
  - DUODENAL PERFORATION [None]
